FAERS Safety Report 10958275 (Version 2)
Quarter: 2015Q1

REPORT INFORMATION
  Report Type: Other
  Country: GB (occurrence: GB)
  Receive Date: 20150326
  Receipt Date: 20150330
  Transmission Date: 20150721
  Serious: Yes (Death, Other)
  Sender: FDA-Public Use
  Company Number: GB-ENDO PHARMACEUTICALS INC-DIAZ20140007

PATIENT
  Age: 12 Day
  Sex: Male

DRUGS (1)
  1. DIAZEPAM. [Suspect]
     Active Substance: DIAZEPAM
     Indication: FOETAL EXPOSURE DURING PREGNANCY
     Route: 065

REACTIONS (2)
  - Foetal exposure during pregnancy [Not Recovered/Not Resolved]
  - Toxicity to various agents [Fatal]
